FAERS Safety Report 6140411-X (Version None)
Quarter: 2009Q1

REPORT INFORMATION
  Report Type: 
  Country: None (occurrence: None)
  Receive Date: 20090331
  Receipt Date: 20090319
  Transmission Date: 20090719
  Serious: Yes (Hospitalization)
  Sender: FDA-Public Use
  Company Number: 233149K09USA

PATIENT
  Age: 47 Year
  Sex: Male
  Weight: 91 kg

DRUGS (1)
  1. REBIF [Suspect]
     Indication: MULTIPLE SCLEROSIS
     Dosage: 44 MCG, 3 IN 1 WEEKS, SUBCUTANEOUS
     Route: 058
     Dates: start: 20080715, end: 20090201

REACTIONS (3)
  - BONE GRAFT [None]
  - DISLOCATION OF VERTEBRA [None]
  - WALKING AID USER [None]
